FAERS Safety Report 5386706-9 (Version None)
Quarter: 2007Q3

REPORT INFORMATION
  Report Type: 
  Country: None (occurrence: None)
  Receive Date: 20070713
  Receipt Date: 20070702
  Transmission Date: 20080115
  Serious: Yes (Disabling, Other)
  Sender: FDA-Public Use
  Company Number: ZA-ROCHE-503407

PATIENT
  Age: 39 Year
  Sex: Female
  Weight: 51 kg

DRUGS (5)
  1. ROACCUTANE [Suspect]
     Indication: ACNE
     Route: 048
     Dates: start: 19970101, end: 19970101
  2. ROACCUTANE [Suspect]
     Dosage: LOW DOSE.
     Route: 048
     Dates: start: 20050101, end: 20060101
  3. ROACCUTANE [Suspect]
     Dosage: INDICATION: ACNE VULGARIS.
     Route: 048
     Dates: start: 20050411, end: 20050423
  4. ROACCUTANE [Suspect]
     Dosage: INDICATION: ACNE VULGARIS.
     Route: 048
     Dates: start: 20050424, end: 20050708
  5. ROACCUTANE [Suspect]
     Route: 048
     Dates: start: 20070601, end: 20070601

REACTIONS (5)
  - ARTHRALGIA [None]
  - BENIGN INTRACRANIAL HYPERTENSION [None]
  - DEPRESSION [None]
  - INTRACRANIAL PRESSURE INCREASED [None]
  - JOINT STIFFNESS [None]
